FAERS Safety Report 20423509 (Version 2)
Quarter: 2022Q1

REPORT INFORMATION
  Report Type: Spontaneous
  Country: CA (occurrence: CA)
  Receive Date: 20220203
  Receipt Date: 20220225
  Transmission Date: 20220423
  Serious: Yes (Other)
  Sender: FDA-Public Use
  Company Number: CA-GILEAD-2022-0568309

PATIENT
  Age: 78 Year
  Sex: Female

DRUGS (9)
  1. VEKLURY [Suspect]
     Active Substance: REMDESIVIR
     Indication: COVID-19 pneumonia
     Dosage: 100 MG, UNK
     Route: 042
     Dates: start: 20210826, end: 20210827
  2. ATROVENT [Concomitant]
     Active Substance: IPRATROPIUM BROMIDE
  3. DEXAMETHASONE [Concomitant]
     Active Substance: DEXAMETHASONE
  4. POLYETHYLENE GLYCOL 3350\POTASSIUM CHLORIDE\SODIUM BICARBONATE\SODIUM [Concomitant]
     Active Substance: POLYETHYLENE GLYCOL 3350\POTASSIUM CHLORIDE\SODIUM BICARBONATE\SODIUM CHLORIDE\SODIUM SULFATE
  5. RABEPRAZOLE [Concomitant]
     Active Substance: RABEPRAZOLE
  6. ALBUTEROL [Concomitant]
     Active Substance: ALBUTEROL
  7. SENOKOT [Concomitant]
     Active Substance: SENNOSIDES
  8. TINZAPARIN [Concomitant]
     Active Substance: TINZAPARIN
  9. VITAMIN D NOS [Concomitant]
     Active Substance: VITAMIN D NOS

REACTIONS (3)
  - Bradycardia [Recovered/Resolved]
  - Heart rate abnormal [Recovered/Resolved]
  - Hypotension [Recovered/Resolved]

NARRATIVE: CASE EVENT DATE: 20210826
